FAERS Safety Report 5169325-9 (Version None)
Quarter: 2006Q4

REPORT INFORMATION
  Report Type: 
  Country: None (occurrence: None)
  Receive Date: 20061201
  Receipt Date: 20061103
  Transmission Date: 20070319
  Serious: Yes (Death, Hospitalization)
  Sender: FDA-Public Use
  Company Number: 2006SP005609

PATIENT
  Age: 63 Year
  Sex: Female
  Weight: 70 kg

DRUGS (3)
  1. TEMODAL [Suspect]
     Dosage: 100 MG; QD; PO
     Route: 048
     Dates: start: 20060920, end: 20060925
  2. TEMODAL [Suspect]
     Dosage: 100 MG; QD; PO
     Route: 048
     Dates: start: 20061023
  3. DEPAKINE (CON.) [Concomitant]

REACTIONS (4)
  - ANAEMIA [None]
  - BONE MARROW TOXICITY [None]
  - NEUTROPENIA [None]
  - THROMBOCYTOPENIA [None]
